FAERS Safety Report 7640461-8 (Version None)
Quarter: 2011Q3

REPORT INFORMATION
  Report Type: 
  Country: None (occurrence: None)
  Receive Date: 20110728
  Receipt Date: 20110718
  Transmission Date: 20111222
  Serious: No
  Sender: FDA-Public Use
  Company Number: US-BIOGENIDEC-2011BI009509

PATIENT
  Sex: Female

DRUGS (2)
  1. AVONEX [Concomitant]
     Indication: MULTIPLE SCLEROSIS
     Route: 030
     Dates: start: 20071001
  2. TYSABRI [Suspect]
     Indication: MULTIPLE SCLEROSIS
     Route: 042
     Dates: start: 20071016

REACTIONS (10)
  - LETHARGY [None]
  - MOBILITY DECREASED [None]
  - ABASIA [None]
  - LOCALISED INFECTION [None]
  - LIMB INJURY [None]
  - OEDEMA PERIPHERAL [None]
  - FATIGUE [None]
  - ELECTROCARDIOGRAM Q WAVE ABNORMAL [None]
  - CHEST PAIN [None]
  - PAIN IN EXTREMITY [None]
